FAERS Safety Report 10327299 (Version 2)
Quarter: 2014Q4

REPORT INFORMATION
  Report Type: Spontaneous
  Country: US (occurrence: US)
  Receive Date: 20140721
  Receipt Date: 20141031
  Transmission Date: 20150528
  Serious: No
  Sender: FDA-Public Use
  Company Number: US-AMGEN-USASP2014053517

PATIENT
  Age: 49 Year
  Sex: Female

DRUGS (1)
  1. ENBREL [Suspect]
     Active Substance: ETANERCEPT
     Indication: RHEUMATOID ARTHRITIS
     Dosage: UNK, QWK
     Route: 065
     Dates: start: 20140629, end: 201407

REACTIONS (13)
  - Headache [Recovered/Resolved]
  - Injection site induration [Not Recovered/Not Resolved]
  - Injection site warmth [Recovered/Resolved]
  - Injection site swelling [Recovered/Resolved]
  - Injection site reaction [Not Recovered/Not Resolved]
  - Hypersensitivity [Recovered/Resolved]
  - Photosensitivity reaction [Recovered/Resolved]
  - Ageusia [Recovered/Resolved]
  - Anxiety [Recovered/Resolved]
  - Skin exfoliation [Recovered/Resolved]
  - Sinusitis [Recovered/Resolved]
  - Wound [Recovered/Resolved]
  - Injection site erythema [Not Recovered/Not Resolved]

NARRATIVE: CASE EVENT DATE: 201407
